FAERS Safety Report 6095542-X (Version None)
Quarter: 2009Q1

REPORT INFORMATION
  Report Type: 
  Country: None (occurrence: None)
  Receive Date: 20090227
  Receipt Date: 20080423
  Transmission Date: 20090719
  Serious: No
  Sender: FDA-Public Use
  Company Number: A0724328A

PATIENT
  Age: 19 Year
  Sex: Male

DRUGS (2)
  1. LAMICTAL [Suspect]
     Indication: BIPOLAR DISORDER
     Dosage: 200MG PER DAY
     Route: 048
     Dates: start: 20080201
  2. RISPERDAL [Suspect]
     Indication: INSOMNIA
     Route: 065
     Dates: start: 20080416

REACTIONS (4)
  - HYPERSENSITIVITY [None]
  - INSOMNIA [None]
  - PRURITUS [None]
  - RASH [None]
